FAERS Safety Report 5922504-2 (Version None)
Quarter: 2008Q4

REPORT INFORMATION
  Report Type: 
  Country: None (occurrence: None)
  Receive Date: 20081017
  Receipt Date: 20081003
  Transmission Date: 20090506
  Serious: Yes (Congenital Anomaly)
  Sender: FDA-Public Use
  Company Number: PHHY2008NL23375

PATIENT
  Sex: Female
  Weight: 4.24 kg

DRUGS (2)
  1. GLEEVEC [Suspect]
     Dosage: FOETAL DRUG EXPOSURE VIA FATHER
  2. INSULIN [Concomitant]
     Route: 064

REACTIONS (2)
  - HYDROCEPHALUS [None]
  - PATERNAL DRUGS AFFECTING FOETUS [None]
